FAERS Safety Report 6915888-X (Version None)
Quarter: 2010Q3

REPORT INFORMATION
  Report Type: 
  Country: None (occurrence: None)
  Receive Date: 20100804
  Receipt Date: 20100715
  Transmission Date: 20110219
  Serious: Yes (Death, Hospitalization)
  Sender: FDA-Public Use
  Company Number: 08-11-00056

PATIENT
  Age: 82 Year
  Sex: Male
  Weight: 68 kg

DRUGS (24)
  1. IMC-11F8 (RH ANTI-EGFR MAB) [Suspect]
     Indication: COLORECTAL CANCER METASTATIC
     Dosage: 800 MG, IV
     Route: 042
     Dates: start: 20080318, end: 20080820
  2. OXALIPLATIN [Suspect]
     Indication: COLORECTAL CANCER METASTATIC
     Dosage: 155.21 MG, IV
     Route: 042
     Dates: start: 20080318, end: 20080820
  3. FLUOROURACIL [Suspect]
     Indication: COLORECTAL CANCER METASTATIC
     Dosage: 4382.4 MG, IV
     Route: 042
     Dates: start: 20080318, end: 20080820
  4. LEUCOVORIN CALCIUM [Suspect]
     Indication: COLORECTAL CANCER METASTATIC
     Dosage: 730.4 MG, IV
     Route: 042
     Dates: start: 20080318, end: 20080820
  5. ENALAPRIL MALEATE [Concomitant]
  6. HYDROCHLOROTHIAZIDE [Concomitant]
  7. LORAZEPAM [Concomitant]
  8. PENTOXIFYLLINE [Concomitant]
  9. FUROSEMIDE [Concomitant]
  10. CEFEPIME [Concomitant]
  11. AZITHROMYCIN [Concomitant]
  12. BACTRIM [Concomitant]
  13. DEXAMETHASONE [Concomitant]
  14. OMEPRAZOLE [Concomitant]
  15. ENOXAPARIN SODIUM [Concomitant]
  16. ACETAMINOPHEN [Concomitant]
  17. METAMIZOL (METAMIZOLE) [Concomitant]
  18. MOVICOL (NULYTELY /01053601/) [Concomitant]
  19. FERROGLYCINE SULFATE [Concomitant]
  20. GANAPENTINE (GABAPENTIN) [Concomitant]
  21. BUDESONIDE [Concomitant]
  22. MORPHINE [Concomitant]
  23. HALOPERIDOL (HAOLPERIDOL) [Concomitant]
  24. FENTANYL-100 [Concomitant]

REACTIONS (3)
  - INFUSION RELATED REACTION [None]
  - ORGANISING PNEUMONIA [None]
  - RESPIRATORY FAILURE [None]
